FAERS Safety Report 7591573-9 (Version None)
Quarter: 2011Q3

REPORT INFORMATION
  Report Type: 
  Country: None (occurrence: None)
  Receive Date: 20110706
  Receipt Date: 20090316
  Transmission Date: 20111222
  Serious: Yes (Death, Hospitalization, Other)
  Sender: FDA-Public Use
  Company Number: US-BAYER-200915506NA

PATIENT
  Age: 65 Year
  Sex: Female
  Weight: 112 kg

DRUGS (32)
  1. TRASYLOL [Suspect]
     Indication: INTRACARDIAC THROMBUS
  2. PROPOFOL [Concomitant]
     Dosage: 50 MG, UNK
     Route: 042
     Dates: start: 20031006, end: 20031006
  3. PANCURONIUM [Concomitant]
     Dosage: UNK
     Route: 042
     Dates: start: 20031006, end: 20031006
  4. SUCCINYLCHOLINE CHLORIDE [Concomitant]
     Dosage: UNK
     Route: 042
     Dates: start: 20031006, end: 20031006
  5. ISOSORBIDE [Concomitant]
     Dosage: 30 MG, QD
     Route: 048
  6. INSULIN [Concomitant]
     Route: 058
  7. NOREPINEPHRINE BITARTRATE [Concomitant]
     Dosage: 0.04 MG/MIN, UNK
     Route: 042
     Dates: start: 20031006, end: 20031006
  8. POTASSIUM [Concomitant]
     Dosage: 20 MEQ 2 TABLETS
     Route: 048
  9. LOVENOX [Concomitant]
     Dosage: 60 MG, QD
     Route: 058
  10. ALDACTONE [POTASSIUM CANRENOATE] [Concomitant]
     Dosage: 25 MG, QD
     Route: 048
     Dates: start: 20030928
  11. TRASYLOL [Suspect]
     Indication: TRICUSPID VALVE REPAIR
  12. FENTANYL [Concomitant]
     Dosage: UNK
     Route: 042
     Dates: start: 20031006, end: 20031006
  13. DOBUTAMINE HCL [Concomitant]
     Dosage: 3 MCG/KG/MIN, UNK
     Route: 042
     Dates: start: 20031006, end: 20031006
  14. TRASYLOL [Suspect]
     Indication: HAEMOSTASIS
  15. ACETYLSALICYLIC ACID SRT [Concomitant]
     Dosage: 325 MG, QD
     Route: 048
  16. ZAROXOLYN [Concomitant]
     Dosage: 5 MG, QD
     Route: 048
  17. FLOLAN [Concomitant]
     Indication: PULMONARY HYPERTENSION
     Dosage: UNK
     Route: 042
     Dates: start: 20031006, end: 20031006
  18. PRINIVIL [Concomitant]
     Dosage: 20-40 MG, QD
     Route: 048
  19. VANCOMYCIN [Concomitant]
     Indication: CHEST TUBE INSERTION
  20. MILRINONE [Concomitant]
     Indication: WEANING FAILURE
     Dosage: 5 MCG/KG/MIN, UNK
     Route: 042
     Dates: start: 20031006, end: 20031006
  21. HEPARIN [Concomitant]
     Dosage: UNK
     Route: 042
     Dates: start: 20031006, end: 20031006
  22. TRASYLOL [Suspect]
     Indication: CORONARY ARTERY BYPASS
     Dosage: UNK
     Dates: start: 20031006
  23. LASIX [Concomitant]
     Dosage: 40 MG, QD
     Route: 048
  24. HYDRALAZINE HCL [Concomitant]
     Dosage: 50 MG, TID
     Route: 048
  25. VERSED [Concomitant]
     Dosage: UNK
     Route: 042
     Dates: start: 20031006, end: 20031006
  26. LANTUS [Concomitant]
     Dosage: 30 U, HS
     Route: 058
  27. DIGOXIN [Concomitant]
     Dosage: 0.25 MG, QD
     Route: 048
     Dates: start: 20031001
  28. TRASYLOL [Suspect]
     Indication: ANEURYSMECTOMY
  29. METOPROLOL TARTRATE [Concomitant]
     Dosage: 50 MG, QD
     Route: 048
  30. EPINEPHRINE [Concomitant]
     Indication: WEANING FAILURE
     Dosage: 0.3 MG/KG/MIN, UNK
     Route: 042
     Dates: start: 20031006, end: 20031006
  31. LIPITOR [Concomitant]
     Dosage: 20 MG, QD
     Route: 048
  32. MULTI-VITAMIN [Concomitant]
     Dosage: 1 TABLET QD
     Route: 048
     Dates: start: 20030926

REACTIONS (10)
  - RENAL FAILURE [None]
  - ANHEDONIA [None]
  - CEREBROVASCULAR ACCIDENT [None]
  - DEPRESSION [None]
  - ANXIETY [None]
  - FEAR [None]
  - PAIN [None]
  - ADVERSE EVENT [None]
  - DEATH [None]
  - INJURY [None]
